FAERS Safety Report 5295826-9 (Version None)
Quarter: 2007Q2

REPORT INFORMATION
  Report Type: 
  Country: None (occurrence: None)
  Receive Date: 20070406
  Receipt Date: 20070329
  Transmission Date: 20071010
  Serious: Yes (Life-Threatening, Hospitalization)
  Sender: FDA-Public Use
  Company Number: 2007-01649

PATIENT
  Age: 78 Year
  Sex: Female

DRUGS (1)
  1. VERAPAMIL [Suspect]
     Indication: ATRIAL FIBRILLATION
     Dosage: 1 TABLET, SINGLE DOSE, ORAL
     Route: 048

REACTIONS (2)
  - APNOEA [None]
  - CARDIOGENIC SHOCK [None]
